FAERS Safety Report 12612141 (Version 1)
Quarter: 2016Q3

REPORT INFORMATION
  Report Type: Report from Study
  Country: UA (occurrence: UA)
  Receive Date: 20160801
  Receipt Date: 20160801
  Transmission Date: 20161109
  Serious: Yes (Hospitalization)
  Sender: FDA-Public Use
  Company Number: UA-ASTRAZENECA-2016SE70625

PATIENT
  Age: 23141 Day
  Sex: Male

DRUGS (14)
  1. TICAGRELOR [Suspect]
     Active Substance: TICAGRELOR
     Indication: CARDIOVASCULAR EVENT PROPHYLAXIS
     Route: 048
     Dates: start: 20160531
  2. TICAGRELOR [Suspect]
     Active Substance: TICAGRELOR
     Indication: CARDIOVASCULAR EVENT PROPHYLAXIS
     Route: 048
     Dates: start: 20150701, end: 20150710
  3. L-THYROXINE [Concomitant]
     Active Substance: LEVOTHYROXINE
     Indication: HYPOTHYROIDISM
     Route: 048
     Dates: start: 20150616
  4. BISOPROLOLUM [Concomitant]
     Indication: BLOOD PRESSURE INADEQUATELY CONTROLLED
     Route: 048
     Dates: start: 20150616
  5. TICAGRELOR [Suspect]
     Active Substance: TICAGRELOR
     Indication: CARDIOVASCULAR EVENT PROPHYLAXIS
     Route: 048
     Dates: start: 20160226, end: 20160515
  6. METPHORMINUM [Concomitant]
     Indication: DIABETES MELLITUS MANAGEMENT
     Route: 048
     Dates: start: 20150616
  7. ROSUVASTATINUM [Concomitant]
     Active Substance: ROSUVASTATIN
     Indication: LIPID METABOLISM DISORDER
     Route: 048
  8. ENALAPRILUM [Concomitant]
     Indication: BLOOD PRESSURE INADEQUATELY CONTROLLED
     Route: 048
     Dates: start: 20160126
  9. TICAGRELOR [Suspect]
     Active Substance: TICAGRELOR
     Indication: CARDIOVASCULAR EVENT PROPHYLAXIS
     Route: 048
     Dates: start: 20150802, end: 20160226
  10. SPIRONOLACTONUM [Concomitant]
     Indication: ANTICOAGULANT THERAPY
     Route: 048
  11. BISOPROLOLUM [Concomitant]
     Indication: HEART RATE
     Route: 048
     Dates: start: 20150616
  12. SPIRONOLACTONUM [Concomitant]
     Indication: DIURETIC THERAPY
     Route: 048
  13. ASPIRIN. [Concomitant]
     Active Substance: ASPIRIN
     Indication: CARDIOVASCULAR EVENT PROPHYLAXIS
     Route: 048
     Dates: start: 20150802
  14. HYDROCHLOROTHIAZIDE. [Concomitant]
     Active Substance: HYDROCHLOROTHIAZIDE
     Indication: BLOOD PRESSURE INADEQUATELY CONTROLLED
     Route: 048
     Dates: start: 20160126

REACTIONS (1)
  - Calculus urinary [Recovering/Resolving]

NARRATIVE: CASE EVENT DATE: 20160515
